FAERS Safety Report 8803704 (Version 3)
Quarter: 2012Q4

REPORT INFORMATION
  Report Type: 
  Country: JP (occurrence: JP)
  Receive Date: 20120924
  Receipt Date: 20121207
  Transmission Date: 20130627
  Serious: Yes (Hospitalization)
  Sender: FDA-Public Use
  Company Number: JP-JNJFOC-20120907698

PATIENT
  Age: 67 Year
  Sex: Female
  Weight: 53 kg

DRUGS (7)
  1. REMICADE [Suspect]
     Indication: RHEUMATOID ARTHRITIS
     Route: 042
     Dates: start: 20070328
  2. REMICADE [Suspect]
     Indication: RHEUMATOID ARTHRITIS
     Dosage: total no. of infusions: 38

25-Jul-2012: dose previously reported as 3.8 mg/kg
     Route: 042
     Dates: start: 20120725
  3. REMICADE [Suspect]
     Indication: RHEUMATOID ARTHRITIS
     Dosage: 1st infusion
     Route: 042
     Dates: start: 20061221
  4. METHOTREXATE [Suspect]
     Indication: RHEUMATOID ARTHRITIS
     Route: 048
     Dates: start: 200508, end: 20120909
  5. MEDROL [Suspect]
     Indication: RHEUMATOID ARTHRITIS
     Route: 048
     Dates: start: 20051221
  6. VOLTAREN [Concomitant]
     Indication: RHEUMATOID ARTHRITIS
     Route: 048
     Dates: start: 20060608
  7. PROTECADIN [Concomitant]
     Indication: RHEUMATOID ARTHRITIS
     Route: 048
     Dates: start: 20070523

REACTIONS (1)
  - Pneumocystis jiroveci pneumonia [Recovering/Resolving]
